FAERS Safety Report 17250969 (Version 1)
Quarter: 2020Q1

REPORT INFORMATION
  Report Type: Spontaneous
  Country: GB (occurrence: GB)
  Receive Date: 20200109
  Receipt Date: 20200109
  Transmission Date: 20200409
  Serious: Yes (Disabling, Other)
  Sender: FDA-Public Use
  Company Number: GB-ACCORD-169236

PATIENT
  Age: 35 Year
  Sex: Male
  Weight: 57.15 kg

DRUGS (1)
  1. ACCORD HEALTHCARE FINASTERIDE [Suspect]
     Active Substance: FINASTERIDE
     Indication: ALOPECIA
     Route: 048
     Dates: start: 20170501, end: 20191223

REACTIONS (5)
  - Cognitive disorder [Unknown]
  - Hypotension [Unknown]
  - Feeling abnormal [Unknown]
  - Memory impairment [Unknown]
  - Dizziness [Unknown]

NARRATIVE: CASE EVENT DATE: 20170801
